FAERS Safety Report 9758409 (Version 1)
Quarter: 2013Q4

REPORT INFORMATION
  Report Type: Spontaneous
  Country: US (occurrence: None)
  Receive Date: 20131213
  Receipt Date: 20131213
  Transmission Date: 20140711
  Serious: Yes (Hospitalization)
  Sender: FDA-Public Use
  Company Number: None

PATIENT
  Age: 71 Year
  Sex: Male
  Weight: 88 kg

DRUGS (5)
  1. PAZOPANIB [Suspect]
     Indication: RENAL CELL CARCINOMA
  2. ESOMEPRAZOLE [Concomitant]
  3. MIDAZOLAM [Concomitant]
  4. FENTANYL [Concomitant]
  5. NOREPINEPHRINE [Concomitant]

REACTIONS (3)
  - Liver function test abnormal [None]
  - Duodenal ulcer haemorrhage [None]
  - Haemodynamic instability [None]
